FAERS Safety Report 6154299-4 (Version None)
Quarter: 2009Q2

REPORT INFORMATION
  Report Type: 
  Country: None (occurrence: None)
  Receive Date: 20090410
  Receipt Date: 20090327
  Transmission Date: 20091009
  Serious: Yes (Other)
  Sender: FDA-Public Use
  Company Number: TPH-00170

PATIENT
  Age: 44 Year
  Sex: Female

DRUGS (1)
  1. TRIQUILAR [Suspect]
     Indication: DRUG USE FOR UNKNOWN INDICATION
     Dosage: ORAL
     Route: 048
     Dates: start: 20080401, end: 20080601

REACTIONS (1)
  - INTRACRANIAL VENOUS SINUS THROMBOSIS [None]
